FAERS Safety Report 9139122 (Version 1)
Quarter: 2013Q1

REPORT INFORMATION
  Report Type: Spontaneous
  Country: GB (occurrence: GB)
  Receive Date: 20130305
  Receipt Date: 20130305
  Transmission Date: 20140127
  Serious: Yes (Hospitalization, Other)
  Sender: FDA-Public Use
  Company Number: GB-EISAI INC-E2020-12050-SPO-GB

PATIENT
  Age: 86 Year
  Sex: Female

DRUGS (6)
  1. DONEPEZIL [Suspect]
     Indication: DEMENTIA
     Route: 048
     Dates: end: 20130214
  2. ALENDRONATE SODIUM [Concomitant]
  3. ENALAPRIL [Concomitant]
  4. GLICLAZIDE [Concomitant]
  5. LANTUS [Concomitant]
  6. PARACETAMOL [Concomitant]

REACTIONS (2)
  - Circulatory collapse [Unknown]
  - Electrocardiogram QT prolonged [Unknown]
